FAERS Safety Report 9445740 (Version 2)
Quarter: 2013Q3

REPORT INFORMATION
  Report Type: Spontaneous
  Country: US (occurrence: US)
  Receive Date: 20130807
  Receipt Date: 20130822
  Transmission Date: 20140515
  Serious: Yes (Other)
  Sender: FDA-Public Use
  Company Number: US-BRISTOL-MYERS SQUIBB COMPANY-19148980

PATIENT
  Age: 60 Year
  Sex: Female

DRUGS (2)
  1. ABATACEPT SUBQ INJECTION 125MG/ML [Suspect]
     Indication: RHEUMATOID ARTHRITIS
     Dosage: INTERUPTED ON UNKNOWN DATE.RESTARTED ON APR2013?LAST DOSE : 22MAY13
     Route: 058
     Dates: start: 201211
  2. LEFLUNOMIDE [Concomitant]

REACTIONS (2)
  - Uveitis [Recovered/Resolved]
  - Perirectal abscess [Unknown]
